FAERS Safety Report 4404243-2 (Version None)
Quarter: 2004Q3

REPORT INFORMATION
  Report Type: 
  Country: None (occurrence: None)
  Receive Date: 20040720
  Receipt Date: 20040715
  Transmission Date: 20050211
  Serious: Yes (Other)
  Sender: FDA-Public Use
  Company Number: US-JNJFOC-20040703808

PATIENT
  Sex: 0

DRUGS (1)
  1. CISAPRIDE (CISAPRIDE) UNSPECIFIED [Suspect]
     Indication: GASTROOESOPHAGEAL REFLUX DISEASE
     Dosage: 0.2 MG/KG, 4 IN 1 DAY

REACTIONS (2)
  - ELECTROCARDIOGRAM QT CORRECTED INTERVAL PROLONGED [None]
  - SUPRAVENTRICULAR EXTRASYSTOLES [None]
